FAERS Safety Report 6199404-9 (Version None)
Quarter: 2009Q2

REPORT INFORMATION
  Report Type: 
  Country: None (occurrence: None)
  Receive Date: 20090522
  Receipt Date: 20090513
  Transmission Date: 20091009
  Serious: Yes (Other)
  Sender: FDA-Public Use
  Company Number: DE-JNJCH-2009013333

PATIENT
  Sex: Female

DRUGS (1)
  1. LISTERINE (UNSPECIFIED) [Suspect]
     Indication: DRUG USE FOR UNKNOWN INDICATION
     Dosage: TEXT:HALF A CAP IN THE EVENING
     Route: 048

REACTIONS (4)
  - APPLICATION SITE BURN [None]
  - APPLICATION SITE IRRITATION [None]
  - DECREASED APPETITE [None]
  - LIP SWELLING [None]
